FAERS Safety Report 23616292 (Version 2)
Quarter: 2025Q4

REPORT INFORMATION
  Report Type: Spontaneous
  Country: GB (occurrence: GB)
  Receive Date: 20240311
  Receipt Date: 20251117
  Transmission Date: 20260118
  Serious: Yes (Death, Hospitalization, Other)
  Sender: TEVA
  Company Number: GB-CELLTRION INC.-2022GB022269

PATIENT
  Age: 59 Year
  Sex: Male
  Weight: 62 kg

DRUGS (116)
  1. DOCETAXEL [Suspect]
     Active Substance: DOCETAXEL
     Indication: Breast cancer metastatic
     Dosage: 220 MILLIGRAM;
     Route: 065
     Dates: start: 20151222
  2. DOCETAXEL [Suspect]
     Active Substance: DOCETAXEL
     Indication: Breast cancer metastatic
     Dosage: DURATION : 22 DAYS
     Route: 065
     Dates: start: 20150930, end: 20151021
  3. DOCETAXEL [Suspect]
     Active Substance: DOCETAXEL
     Indication: Breast cancer metastatic
     Dosage: 220 MG (CUMULATIVE DOSE TO FIRST REACTION: 220 MG);
     Route: 065
  4. HALOPERIDOL [Suspect]
     Active Substance: HALOPERIDOL
     Indication: Product used for unknown indication
     Dosage: 10 MILLIGRAM, TWO TIMES A DAY (5 MG, BID)
     Route: 065
  5. CLOZARIL [Suspect]
     Active Substance: CLOZAPINE
     Indication: Schizophrenia
     Dosage: ^300 MG, QD, (PM)/300 MG, QD (1X/DAY (PM));^, 300 MG DAILY
     Route: 065
  6. CLOZARIL [Suspect]
     Active Substance: CLOZAPINE
     Indication: Schizophrenia
     Dosage: 300 MG, DAILY (PM)/300 MILLIGRAM, ONCE A DAY PM; 300 MG DAILY
     Route: 065
     Dates: start: 20100823
  7. CLOZARIL [Suspect]
     Active Substance: CLOZAPINE
     Indication: Schizophrenia
     Dosage: ^400 MILLIGRAM, DAILY, TABLET (UNCOATED, ORAL);^
     Route: 048
     Dates: start: 2011
  8. CLOZARIL [Suspect]
     Active Substance: CLOZAPINE
     Indication: Schizophrenia
     Dosage: ^200 MILLIGRAM, TWO TIMES A DAY TABLET (UNCOATED, ORAL);^, DURATION: 15 DAYS
     Route: 048
     Dates: start: 20191209, end: 20191223
  9. CLOZARIL [Suspect]
     Active Substance: CLOZAPINE
     Indication: Schizophrenia
     Dosage: ^600 MILLIGRAM, QD;^, DURATION: 15 DAYS, 600 MG DAILY
     Route: 065
     Dates: start: 20191207, end: 20191223
  10. CLOZARIL [Suspect]
     Active Substance: CLOZAPINE
     Indication: Schizophrenia
     Dosage: ^800 MILLIGRAM, QD;^, 800 MG DAILY
     Route: 065
     Dates: start: 20201207
  11. CLOZARIL [Suspect]
     Active Substance: CLOZAPINE
     Indication: Schizophrenia
     Dosage: ^400 MILLIGRAM, QD (400 MG, DAILY)/23-DEC-2019; 23-DEC-2019 00:00;^, DURATION: 1 DAYS, 400 MG DAILY
     Route: 065
     Dates: start: 20191223, end: 20191223
  12. CLOZARIL [Suspect]
     Active Substance: CLOZAPINE
     Indication: Schizophrenia
     Dosage: ^245 MILLIGRAM, QD;^, DURATION: 1 DAYS, 245 MG DAILY
     Route: 065
     Dates: start: 20190823, end: 20190823
  13. CLOZARIL [Suspect]
     Active Substance: CLOZAPINE
     Indication: Schizophrenia
     Dosage: ^6000 MILLIGRAM;^
     Route: 065
     Dates: start: 20200207
  14. CLOZARIL [Suspect]
     Active Substance: CLOZAPINE
     Indication: Schizophrenia
     Dosage: ^6000 MG;^, DURATION: 15 DAYS
     Route: 065
     Dates: start: 20191209, end: 20191223
  15. CLOZARIL [Suspect]
     Active Substance: CLOZAPINE
     Indication: Schizophrenia
     Dosage: ^245 MG, UNKNOWN;^
     Route: 065
     Dates: start: 20200521
  16. CLOZARIL [Suspect]
     Active Substance: CLOZAPINE
     Indication: Schizophrenia
     Dosage: ^6000 MILLIGRAM;^
     Route: 065
     Dates: start: 20200521
  17. CLOZARIL [Suspect]
     Active Substance: CLOZAPINE
     Indication: Schizophrenia
     Dosage: ^400 MG;^
     Route: 065
     Dates: start: 20200823
  18. CLOZARIL [Suspect]
     Active Substance: CLOZAPINE
     Indication: Schizophrenia
     Dosage: ^6000 MILLIGRAM;^, DURATION:15 DAYS
     Route: 065
     Dates: start: 20191209, end: 20191223
  19. CLOZARIL [Suspect]
     Active Substance: CLOZAPINE
     Indication: Schizophrenia
     Dosage: ^245 MG, UNKNOWN, TABLET (UNCOATED, ORAL);^, DURATION: 1 DAYS
     Route: 048
     Dates: start: 20191223, end: 20191223
  20. CLOZARIL [Suspect]
     Active Substance: CLOZAPINE
     Indication: Schizophrenia
     Route: 065
  21. CLOZARIL [Suspect]
     Active Substance: CLOZAPINE
     Indication: Schizophrenia
     Dosage: ^6000 MILLIGRAM;^
     Route: 065
     Dates: start: 20200521
  22. CLOZARIL [Suspect]
     Active Substance: CLOZAPINE
     Indication: Schizophrenia
     Dosage: ^245 MG, UNKNOWN;^, DURATION: 62 DAYS
     Route: 065
     Dates: start: 20200521, end: 20201223
  23. CLOZARIL [Suspect]
     Active Substance: CLOZAPINE
     Indication: Schizophrenia
     Dosage: ^6000 MILLIGRAM;^, DURATION: 1 DAYS
     Route: 065
     Dates: start: 20201223, end: 20201223
  24. CLOZARIL [Suspect]
     Active Substance: CLOZAPINE
     Indication: Schizophrenia
     Dosage: ^6000 MG;^, DURATION: 15 DAYS
     Route: 065
     Dates: start: 20100823, end: 20100823
  25. CLOZARIL [Suspect]
     Active Substance: CLOZAPINE
     Indication: Schizophrenia
     Dosage: ^400 MG, UNKNOWN;^, DURATION: 1 DAYS
     Route: 065
     Dates: start: 20191223, end: 20191223
  26. CLOZARIL [Suspect]
     Active Substance: CLOZAPINE
     Indication: Schizophrenia
     Dosage: ^50 MILLIGRAM, QD (50 MG, DAILY);^, DURATION: 15 DAYS, 50 MG DAILY
     Route: 065
     Dates: start: 20191209, end: 20191223
  27. CLOZARIL [Suspect]
     Active Substance: CLOZAPINE
     Indication: Schizophrenia
     Dosage: ^800 MILLIGRAM, BID;^
     Route: 065
  28. CLOZARIL [Suspect]
     Active Substance: CLOZAPINE
     Indication: Schizophrenia
     Dosage: ^800 MG, DAILY;^
     Route: 065
     Dates: start: 20201207
  29. CLOZARIL [Suspect]
     Active Substance: CLOZAPINE
     Indication: Schizophrenia
     Dosage: ^6000 MG, (ADDITIONAL INFORMATION ON DRUG (FREE TEXT): CLOZARIL ADDITIONAL INFO: OFF LABEL USE; C...
     Route: 065
     Dates: start: 20200207
  30. CLOZARIL [Suspect]
     Active Substance: CLOZAPINE
     Indication: Schizophrenia
     Dosage: ^50 MILLIGRAM, ONCE A DAY (50 MILLIGRAM, MIDDAY), TABLET (UNCOATED, ORAL);^, DURATION: 15 DAYS, 5...
     Route: 048
     Dates: start: 20190809, end: 20190823
  31. CLOZARIL [Suspect]
     Active Substance: CLOZAPINE
     Indication: Schizophrenia
     Dosage: ^600 MILLIGRAM, QD;^, 600 MG DAILY
     Route: 065
     Dates: start: 20200521, end: 2021
  32. CLOZARIL [Suspect]
     Active Substance: CLOZAPINE
     Indication: Schizophrenia
     Dosage: ^245 MILLIGRAM, QD, 1 ONCE A DAY (AM)/2011;^, 245 MG DAILY
     Route: 065
     Dates: start: 20191207
  33. CLOZARIL [Suspect]
     Active Substance: CLOZAPINE
     Indication: Schizophrenia
     Dosage: ^6000 MILLIGRAM;^
     Route: 065
     Dates: start: 20201207
  34. CLOZARIL [Suspect]
     Active Substance: CLOZAPINE
     Indication: Schizophrenia
     Dosage: ^50 MG, QD, (MIDDAY);^, 50 MG DAILY
     Route: 065
     Dates: start: 20200521
  35. TAZOBACTAM SODIUM [Concomitant]
     Active Substance: TAZOBACTAM SODIUM
     Indication: Febrile neutropenia
     Dosage: DURATION: 1877 DAYS
     Route: 065
     Dates: start: 20151121
  36. CHLORPROMAZINE [Suspect]
     Active Substance: CHLORPROMAZINE
     Indication: Schizophrenia
     Dosage: 75 MILLIGRAM, ADDITIONAL INFORMATION ON DRUG (FREE TEXT): CLOZARIL ADDITIONAL INFO: OFF LABEL USE
     Route: 065
  37. LORAZEPAM [Suspect]
     Active Substance: LORAZEPAM
     Indication: Product used for unknown indication
     Dosage: 1 MILLIGRAM,
     Route: 065
  38. LITHIUM [Suspect]
     Active Substance: LITHIUM
     Indication: Product used for unknown indication
     Dosage: 1 GRAM;
     Route: 065
  39. LITHIUM [Suspect]
     Active Substance: LITHIUM
     Indication: Product used for unknown indication
     Dosage: ^2 G, (ADDITIONAL INFORMATION ON DRUG (FREE TEXT): CLOZARIL ADDITIONAL INFO) / 2 G, UNKNOWN / ADD...
     Route: 065
  40. LITHIUM [Suspect]
     Active Substance: LITHIUM
     Indication: Product used for unknown indication
     Dosage: ^6 MILLIGRAM, QD (ADDITIONAL INFORMATION ON DRUG (FREE TEXT): CLOZARIL ADDITIONAL INFO) / DOSAGE ...
     Route: 065
  41. LITHIUM [Suspect]
     Active Substance: LITHIUM
     Indication: Product used for unknown indication
     Dosage: ^1 MG;^
     Route: 065
  42. ARIPIPRAZOLE [Suspect]
     Active Substance: ARIPIPRAZOLE
     Indication: Schizophrenia
     Dosage: 5 MG, UNKNOWN, TABLET (UNCOATED, ORAL);
     Route: 048
  43. PACLITAXEL [Suspect]
     Active Substance: PACLITAXEL
     Indication: Breast cancer metastatic
     Dosage: 150 MG, QW (CUMULATIVE DOSE: 428.57 MG, DURATION : 42 DAYS
     Route: 065
     Dates: start: 20151111, end: 20151222
  44. PACLITAXEL [Suspect]
     Active Substance: PACLITAXEL
     Indication: Breast cancer metastatic
     Dosage: 120 MG, 1/WEEK, (ADDITIONAL INFORMATION ON DRUG (FREE TEXT): CLOZARIL ADDITIONAL INFO: OFF LABEL ...
     Route: 065
     Dates: start: 20151223, end: 20151223
  45. PACLITAXEL [Suspect]
     Active Substance: PACLITAXEL
     Indication: Breast cancer metastatic
     Dosage: ^	11-NOV-2015 120 MG, QW, WEEKLY (1/W) [CUMULATIVE DOSE TO FIRST REACTION: 171.42857 MG]^, DURATI...
     Route: 065
     Dates: start: 20151111, end: 20151222
  46. PACLITAXEL [Suspect]
     Active Substance: PACLITAXEL
     Indication: Breast cancer metastatic
     Dosage: ^150 MG, QW^, DURATION: 1 DAYS
     Route: 065
     Dates: start: 20151223, end: 20151223
  47. DENOSUMAB [Suspect]
     Active Substance: DENOSUMAB
     Indication: Metastases to bone
     Route: 065
  48. PERTUZUMAB [Suspect]
     Active Substance: PERTUZUMAB
     Indication: Breast cancer metastatic
     Dosage: ^420 MILLIGRAM, Q3WK; CUMULATIVE DOSE TO FIRST REACTION: 1281.667 MG;^
     Route: 065
     Dates: end: 20151021
  49. PERTUZUMAB [Suspect]
     Active Substance: PERTUZUMAB
     Indication: Breast cancer metastatic
     Dosage: ^840 MG, Q3W (CUMULATIVE DOSE: 2481.6667 MG)^
     Route: 065
     Dates: start: 20150930
  50. PERTUZUMAB [Suspect]
     Active Substance: PERTUZUMAB
     Indication: Breast cancer metastatic
     Dosage: ^UNK, QWK^
     Route: 065
  51. PERTUZUMAB [Suspect]
     Active Substance: PERTUZUMAB
     Indication: Breast cancer metastatic
     Dosage: ^840 MG, Q3W (CUMULATIVE DOSE: 2481.6667 MG);^
     Route: 065
     Dates: start: 20150930
  52. PERTUZUMAB [Suspect]
     Active Substance: PERTUZUMAB
     Indication: Breast cancer metastatic
     Dosage: ^840 MILLIGRAM, Q3WK; CUMULATIVE DOSE TO FIRST REACTION: 1281.667 MG;^
     Route: 065
     Dates: start: 20151021
  53. PERTUZUMAB [Suspect]
     Active Substance: PERTUZUMAB
     Indication: Breast cancer metastatic
     Dosage: ^21-OCT-2015 2 U, WEEKLY (1/W)^
     Route: 065
     Dates: start: 20151021
  54. PERTUZUMAB [Suspect]
     Active Substance: PERTUZUMAB
     Indication: Breast cancer metastatic
     Dosage: ^420 MG, Q3W^
     Route: 065
     Dates: start: 20151021
  55. HALDOL [Concomitant]
     Active Substance: HALOPERIDOL
     Indication: Product used for unknown indication
     Dosage: 20 MG, QD (10 MG, BID);
     Route: 065
  56. HALDOL [Concomitant]
     Active Substance: HALOPERIDOL
     Indication: Product used for unknown indication
     Dosage: 40 MG, QD, 40 MG DAILY
     Route: 065
  57. HALDOL [Concomitant]
     Active Substance: HALOPERIDOL
     Indication: Product used for unknown indication
     Dosage: 10 MG, QD; 10 MG DAILY
     Route: 065
  58. HALDOL [Concomitant]
     Active Substance: HALOPERIDOL
     Indication: Product used for unknown indication
     Dosage: 5 MG, QD;, 5 MG DAILY
     Route: 065
  59. TRASTUZUMAB [Suspect]
     Active Substance: TRASTUZUMAB
     Indication: Breast cancer metastatic
     Dosage: ^1827 MILLIGRAM, QWK^
     Route: 065
     Dates: start: 20150930
  60. TRASTUZUMAB [Suspect]
     Active Substance: TRASTUZUMAB
     Indication: Breast cancer metastatic
     Dosage: ^840 MG, Q3W (CUMULATIVE DOSE: 2481.6667 MG;^
     Route: 065
  61. TRASTUZUMAB [Suspect]
     Active Substance: TRASTUZUMAB
     Indication: Breast cancer metastatic
     Dosage: ^1827 MILLIGRAM;^
     Route: 065
     Dates: start: 20150930
  62. TRASTUZUMAB [Suspect]
     Active Substance: TRASTUZUMAB
     Indication: Breast cancer metastatic
     Dosage: ^1218 MILLIGRAM, QWK (206893.25 MG)^
     Route: 065
     Dates: start: 20150930
  63. TRASTUZUMAB [Suspect]
     Active Substance: TRASTUZUMAB
     Indication: Breast cancer metastatic
     Dosage: ^609 MG, EVERY 3 WEEKS (CUMULATIVE DOSE FORM: 1799.20 MG);^
     Route: 065
     Dates: start: 20150930
  64. TRASTUZUMAB [Suspect]
     Active Substance: TRASTUZUMAB
     Indication: Breast cancer metastatic
     Route: 065
     Dates: start: 20151130
  65. RISPERDAL [Suspect]
     Active Substance: RISPERIDONE
     Indication: Product used for unknown indication
     Dosage: ^4 MILLIGRAM, BID;^, 8 MG DAILY
     Route: 065
  66. RISPERDAL [Suspect]
     Active Substance: RISPERIDONE
     Indication: Product used for unknown indication
     Dosage: ^6 MG, QD;^, 6 MG DAILY
     Route: 065
  67. RISPERDAL [Suspect]
     Active Substance: RISPERIDONE
     Indication: Product used for unknown indication
     Dosage: ^3 MG, BID;^, 6 MG DAILY
     Route: 065
  68. RISPERDAL [Suspect]
     Active Substance: RISPERIDONE
     Indication: Product used for unknown indication
     Dosage: ^12 MG;^
     Route: 065
  69. RISPERDAL [Suspect]
     Active Substance: RISPERIDONE
     Indication: Product used for unknown indication
     Dosage: ^1 G, QD;^, 1 G DAILY
     Route: 065
  70. RISPERDAL [Suspect]
     Active Substance: RISPERIDONE
     Indication: Product used for unknown indication
     Dosage: ^2 MILLIGRAM;^
     Route: 065
  71. RISPERDAL [Suspect]
     Active Substance: RISPERIDONE
     Indication: Product used for unknown indication
     Dosage: ^2 MILLIGRAM, TWO TIMES A DAY;^, 4 MG DAILY
     Route: 065
  72. RISPERDAL [Suspect]
     Active Substance: RISPERIDONE
     Indication: Product used for unknown indication
     Route: 065
  73. TAZOCIN [Concomitant]
     Indication: Febrile neutropenia
     Dosage: UNK, UNK
     Dates: start: 20151121
  74. OLANZAPINE [Suspect]
     Active Substance: OLANZAPINE
     Indication: Product used for unknown indication
     Dosage: 10 MG/10 MILLIGRAM;
     Route: 065
  75. OLANZAPINE [Suspect]
     Active Substance: OLANZAPINE
     Indication: Product used for unknown indication
     Dosage: 15 MG, UNKNOWN
     Route: 065
     Dates: start: 20040217
  76. OLANZAPINE [Suspect]
     Active Substance: OLANZAPINE
     Indication: Product used for unknown indication
     Dosage: 15 MG, UNKNOWN;
     Route: 065
     Dates: start: 20170204
  77. OLANZAPINE [Suspect]
     Active Substance: OLANZAPINE
     Indication: Product used for unknown indication
     Dosage: 1 MG, UNKNOWN;
     Route: 065
     Dates: start: 20040217
  78. OLANZAPINE [Suspect]
     Active Substance: OLANZAPINE
     Indication: Product used for unknown indication
     Route: 065
     Dates: start: 20060704
  79. OLANZAPINE [Suspect]
     Active Substance: OLANZAPINE
     Indication: Product used for unknown indication
     Dosage: 2.5 MG, UNKNOWN;
     Route: 065
     Dates: start: 20080823
  80. ZUCLOPENTHIXOL [Suspect]
     Active Substance: ZUCLOPENTHIXOL
     Indication: Product used for unknown indication
     Dosage: ^18-OCT-2004 800 MILLIGRAMS, QWK^, DURATION: 1 DAYS
     Route: 065
     Dates: start: 20041018, end: 20041018
  81. ZUCLOPENTHIXOL [Suspect]
     Active Substance: ZUCLOPENTHIXOL
     Indication: Product used for unknown indication
     Dosage: ^400 MILLIGRAM, QW^, DURATION: 106 DAYS
     Route: 065
     Dates: start: 20030217, end: 20040601
  82. ZUCLOPENTHIXOL [Suspect]
     Active Substance: ZUCLOPENTHIXOL
     Indication: Product used for unknown indication
     Dosage: ^400 MG, CYCLIC (400 MG, BIWEEKLY)/01-JUN-2004;^
     Route: 065
     Dates: start: 20041018
  83. ZUCLOPENTHIXOL [Suspect]
     Active Substance: ZUCLOPENTHIXOL
     Indication: Product used for unknown indication
     Dosage: ^300 MG, QW (300 MILLIGRAM I.M WEEKLY), (ADDITIONAL INFORMATION ON DRUG (FREE TEXT): CLOZARIL ADD...
     Route: 065
     Dates: start: 20091009
  84. ZUCLOPENTHIXOL [Suspect]
     Active Substance: ZUCLOPENTHIXOL
     Indication: Product used for unknown indication
     Dosage: ^400 MG, WEEKLY (1/W)^. DURATION: 106 DAYS
     Route: 065
     Dates: start: 20040217, end: 20040601
  85. ZUCLOPENTHIXOL [Suspect]
     Active Substance: ZUCLOPENTHIXOL
     Indication: Product used for unknown indication
     Dosage: ^800 MILLIGRAM, QWK^, DURATION: 140 DAYS
     Route: 065
     Dates: start: 20040601, end: 20041018
  86. ZUCLOPENTHIXOL [Suspect]
     Active Substance: ZUCLOPENTHIXOL
     Indication: Product used for unknown indication
     Dosage: ^400 MG, QW2^
     Route: 065
     Dates: start: 20091018
  87. ZUCLOPENTHIXOL [Suspect]
     Active Substance: ZUCLOPENTHIXOL
     Indication: Product used for unknown indication
     Dosage: ^300 MILLIGRAM, QWK;^
     Route: 065
     Dates: start: 20091018
  88. ZUCLOPENTHIXOL [Suspect]
     Active Substance: ZUCLOPENTHIXOL
     Indication: Product used for unknown indication
     Dosage: ^800 MILLIGRAM, QW (400 MG, 2/W)/04-FEB-2003^
     Route: 065
     Dates: start: 20040217
  89. ZUCLOPENTHIXOL [Suspect]
     Active Substance: ZUCLOPENTHIXOL
     Indication: Product used for unknown indication
     Dosage: ^18-OCT-2009 400 MG, BIW;^
     Route: 065
     Dates: start: 20091018
  90. ZUCLOPENTHIXOL [Suspect]
     Active Substance: ZUCLOPENTHIXOL
     Indication: Product used for unknown indication
     Dosage: ^04-MAR-2003 400 MG, 1/WEEK^, DURATION: 595 DAYS
     Route: 065
     Dates: start: 20030304, end: 20040217
  91. ZUCLOPENTHIXOL [Suspect]
     Active Substance: ZUCLOPENTHIXOL
     Indication: Product used for unknown indication
     Dosage: ^400 MG, 1/WEEK (DOSE TEXT: 400 MG, QW; CUMULATIVE DOSE TO FIRST REACTION: 244285.72 MG) ^, DURAT...
     Route: 065
     Dates: start: 20040217, end: 20040601
  92. ZUCLOPENTHIXOL [Suspect]
     Active Substance: ZUCLOPENTHIXOL
     Indication: Product used for unknown indication
     Dosage: ^01-SEP-2004 400 MILLIGRAMS;^
     Route: 065
     Dates: start: 20040901
  93. ZUCLOPENTHIXOL [Suspect]
     Active Substance: ZUCLOPENTHIXOL
     Indication: Product used for unknown indication
     Dosage: ^18-OCT-2019 400 MG, 1/WEEK^, DURATION: 595 DAYS
     Route: 065
     Dates: start: 20191018
  94. RISPERIDONE [Suspect]
     Active Substance: RISPERIDONE
     Indication: Product used for unknown indication
     Dosage: 2 MG, BID, 4 MG DAILY
     Route: 065
  95. RISPERIDONE [Suspect]
     Active Substance: RISPERIDONE
     Indication: Product used for unknown indication
     Dosage: 1 MILLIGRAM, DAILY
     Route: 065
  96. DOCETAXEL [Suspect]
     Active Substance: DOCETAXEL
     Indication: Breast cancer metastatic
     Dosage: HOSPIRA ENTERPRISES DOCETAXEL
     Route: 065
     Dates: start: 20151222
  97. DOCETAXEL [Suspect]
     Active Substance: DOCETAXEL
     Indication: Breast cancer metastatic
     Dosage: ^110 MG, Q3W (CUMULATIVE DOSE: 324.98);^, DURATION: 3 WEEKS, HOSPIRA ENTERPRISES DOCETAXEL
     Route: 065
     Dates: start: 20150930, end: 20151021
  98. CALCIUM\CHOLECALCIFEROL [Concomitant]
     Active Substance: CALCIUM\CHOLECALCIFEROL
     Indication: Product used for unknown indication
  99. ACETAMINOPHEN [Concomitant]
     Active Substance: ACETAMINOPHEN
     Indication: Pain
     Dosage: 500 MG ,
     Route: 065
  100. ZUCLOPENTHIXOL [Suspect]
     Active Substance: ZUCLOPENTHIXOL
     Indication: Product used for unknown indication
     Dosage: 400 MILLIGRAM, CYCLICAL, (400 MG, CYCLIC (400 MG, BIWEEKLY), DURATION :106 DAYS
     Route: 065
     Dates: start: 20040217, end: 20040601
  101. CHLORPHENIRAMINE MALEATE [Concomitant]
     Active Substance: CHLORPHENIRAMINE MALEATE
     Indication: Product used for unknown indication
     Dates: start: 20151111
  102. MORPHINE [Concomitant]
     Active Substance: MORPHINE
     Indication: Pain
     Dosage: 30 MG
     Route: 065
  103. MORPHINE [Concomitant]
     Active Substance: MORPHINE
     Indication: Pain
     Dosage: 30 MG, BID, 60 MG DAILY
     Route: 065
     Dates: start: 201509
  104. MORPHINE [Concomitant]
     Active Substance: MORPHINE
     Indication: Pain
     Dosage: 15 MG, DAILY
     Route: 065
     Dates: start: 201510
  105. AMOXICILLIN\CLAVULANIC ACID [Concomitant]
     Active Substance: AMOXICILLIN\CLAVULANIC ACID
     Indication: Febrile neutropenia
     Dosage: 625 MG, QID,  2500MG DAILY, DURATION 3 DAYS
     Route: 065
     Dates: start: 20151122, end: 20151125
  106. AMOXICILLIN\CLAVULANIC ACID [Concomitant]
     Active Substance: AMOXICILLIN\CLAVULANIC ACID
     Indication: Febrile neutropenia
     Dosage: 120 MG, OTHER (EVERY 9 WEEKS)  DURATION 3 DAYS
     Dates: start: 20151111
  107. CHOLECALCIFEROL [Concomitant]
     Active Substance: CHOLECALCIFEROL
     Indication: Product used for unknown indication
     Dosage: 2 MG/3ML, DAILY, (QD)
     Route: 065
  108. PREGABALIN [Concomitant]
     Active Substance: PREGABALIN
     Indication: Product used for unknown indication
     Dosage: 75 MG, BID  , 150 MG DAILY
     Route: 065
     Dates: start: 201509
  109. PREGABALIN [Concomitant]
     Active Substance: PREGABALIN
     Indication: Product used for unknown indication
     Dosage: ,UNIT DOSE: 75MG, FREQUENCY: EVERY 12 HOURS, 150 MG DAILY
     Route: 065
     Dates: start: 201509
  110. DULOXETINE [Concomitant]
     Active Substance: DULOXETINE
     Indication: Product used for unknown indication
     Route: 065
  111. LEVOFLOXACIN [Suspect]
     Active Substance: LEVOFLOXACIN
     Indication: Febrile neutropenia
     Dosage: 500 MG, QD , 500 MG DAILY
     Route: 065
     Dates: start: 20151125
  112. RANITIDINE [Concomitant]
     Active Substance: RANITIDINE
     Indication: Gastrooesophageal reflux disease
     Route: 065
  113. RANITIDINE [Concomitant]
     Active Substance: RANITIDINE
     Indication: Gastrooesophageal reflux disease
     Dosage: 50 MG, QW  ,
     Route: 065
     Dates: start: 20151111
  114. RANITIDINE [Concomitant]
     Active Substance: RANITIDINE
     Indication: Gastrooesophageal reflux disease
     Dosage: 150 MG, QW  ,
     Route: 065
  115. MORPHINE SULFATE [Concomitant]
     Active Substance: MORPHINE SULFATE
     Indication: Product used for unknown indication
     Dosage: 10MG ,
     Route: 065
     Dates: start: 201509
  116. GENTAMICIN [Concomitant]
     Active Substance: GENTAMICIN
     Indication: Product used for unknown indication
     Route: 065
     Dates: start: 20151121

REACTIONS (41)
  - Neoplasm progression [Fatal]
  - Extrapyramidal disorder [Fatal]
  - Psychotic disorder [Fatal]
  - Schizophrenia [Fatal]
  - Lymphocyte count decreased [Fatal]
  - Lymphocyte count abnormal [Fatal]
  - Hallucination, auditory [Fatal]
  - Delusion of grandeur [Fatal]
  - Leukocytosis [Fatal]
  - SARS-CoV-2 test positive [Fatal]
  - Off label use [Fatal]
  - Incorrect dose administered [Fatal]
  - Leukopenia [Fatal]
  - Neutrophil count increased [Fatal]
  - Diarrhoea [Fatal]
  - Cellulitis [Fatal]
  - Fatigue [Fatal]
  - Overdose [Fatal]
  - Neutrophil count decreased [Fatal]
  - Disease progression [Fatal]
  - Seizure [Fatal]
  - Intentional product misuse [Fatal]
  - Lymphocyte count abnormal [Fatal]
  - Leukocytosis [Fatal]
  - Off label use [Fatal]
  - Fatigue [Fatal]
  - Hospitalisation [Fatal]
  - Alopecia [Fatal]
  - Off label use [Fatal]
  - Neuropathy peripheral [Fatal]
  - Fatigue [Fatal]
  - Extrapyramidal disorder [Fatal]
  - Affective disorder [Fatal]
  - Nausea [Fatal]
  - Rhinalgia [Fatal]
  - Neutropenia [Fatal]
  - Thrombocytopenia [Fatal]
  - Dyspepsia [Fatal]
  - COVID-19 [Fatal]
  - Platelet count decreased [Fatal]
  - Mucosal inflammation [Fatal]

NARRATIVE: CASE EVENT DATE: 20151101
